FAERS Safety Report 11909824 (Version 1)
Quarter: 2016Q1

REPORT INFORMATION
  Report Type: Spontaneous
  Country: US (occurrence: None)
  Receive Date: 20160111
  Receipt Date: 20160111
  Transmission Date: 20160526
  Serious: Yes (Other)
  Sender: FDA-Public Use
  Company Number: None

PATIENT
  Age: 62 Year
  Sex: Female

DRUGS (16)
  1. BONIVA [Concomitant]
     Active Substance: IBANDRONATE SODIUM
  2. TEMOZOMIDE 100 MG TEVA [Suspect]
     Active Substance: TEMOZOLOMIDE
     Indication: HEPATIC CANCER
     Route: 048
  3. VITAMIN D [Concomitant]
     Active Substance: CHOLECALCIFEROL
  4. NIASPAN [Concomitant]
     Active Substance: NIACIN
  5. TRAMADOL HCL [Concomitant]
     Active Substance: TRAMADOL HYDROCHLORIDE
  6. VITAMIN B12 [Concomitant]
     Active Substance: CYANOCOBALAMIN
  7. CAPECITABINE 500 MG TEVA [Suspect]
     Active Substance: CAPECITABINE
     Indication: CARCINOID TUMOUR
     Route: 048
     Dates: start: 20150610, end: 20151119
  8. PREVACID [Concomitant]
     Active Substance: LANSOPRAZOLE
  9. PREVACID [Concomitant]
     Active Substance: LANSOPRAZOLE
  10. FLUOXETINE [Concomitant]
     Active Substance: FLUOXETINE HYDROCHLORIDE
  11. TYLENOL [Concomitant]
     Active Substance: ACETAMINOPHEN
  12. SPECTRACEF [Concomitant]
     Active Substance: CEFDITOREN PIVOXIL
  13. LORAZEPAM. [Concomitant]
     Active Substance: LORAZEPAM
  14. GEMFIBROZIL. [Concomitant]
     Active Substance: GEMFIBROZIL
  15. MAG-200 [Concomitant]
  16. ATENOLOL. [Concomitant]
     Active Substance: ATENOLOL

REACTIONS (2)
  - Vomiting [None]
  - Nausea [None]

NARRATIVE: CASE EVENT DATE: 20151113
